FAERS Safety Report 13344962 (Version 5)
Quarter: 2017Q4

REPORT INFORMATION
  Report Type: Spontaneous
  Country: CN (occurrence: CN)
  Receive Date: 20170317
  Receipt Date: 20171103
  Transmission Date: 20180320
  Serious: Yes (Hospitalization, Other)
  Sender: FDA-Public Use
  Company Number: CN-009507513-1703CHN005498

PATIENT
  Age: 57 Year
  Sex: Female
  Weight: 60 kg

DRUGS (3)
  1. RIBAVIRIN. [Suspect]
     Active Substance: RIBAVIRIN
     Indication: CHRONIC HEPATITIS C
     Dosage: 900 MG/DAY
     Route: 048
     Dates: start: 20150304, end: 20151014
  2. RIBAVIRIN. [Suspect]
     Active Substance: RIBAVIRIN
     Dosage: 600 MG, QD
     Route: 048
     Dates: start: 2015, end: 2015
  3. PEGINTRON [Suspect]
     Active Substance: PEGINTERFERON ALFA-2B
     Indication: CHRONIC HEPATITIS C
     Dosage: 80 MICROGRAM/WEEK
     Route: 058
     Dates: start: 20150304, end: 20151107

REACTIONS (6)
  - Blood electrolytes abnormal [Unknown]
  - Hypocalcaemia [Unknown]
  - Urinary tract infection [Unknown]
  - Autoimmune haemolytic anaemia [Recovered/Resolved]
  - Hypokalaemia [Unknown]
  - Hypothyroidism [Not Recovered/Not Resolved]

NARRATIVE: CASE EVENT DATE: 20150429
